FAERS Safety Report 8201059-6 (Version None)
Quarter: 2012Q1

REPORT INFORMATION
  Report Type: 
  Country: None (occurrence: None)
  Receive Date: 20120312
  Receipt Date: 20120110
  Transmission Date: 20120608
  Serious: No
  Sender: FDA-Public Use
  Company Number: US-ABBOTT-12P-163-0892654-00

PATIENT
  Sex: Female
  Weight: 56.75 kg

DRUGS (3)
  1. LUPRON DEPOT [Suspect]
     Indication: UTERINE LEIOMYOMA
     Dates: start: 20111201
  2. LEXAPRO [Concomitant]
     Indication: DEPRESSION
  3. LEXAPRO [Concomitant]
     Indication: ANXIETY

REACTIONS (4)
  - ARTHRALGIA [None]
  - PAIN [None]
  - INJECTION SITE PAIN [None]
  - DRY EYE [None]
